FAERS Safety Report 9427984 (Version 1)
Quarter: 2013Q3

REPORT INFORMATION
  Report Type: Report from Study
  Country: US (occurrence: US)
  Receive Date: 20130730
  Receipt Date: 20130730
  Transmission Date: 20140515
  Serious: No
  Sender: FDA-Public Use
  Company Number: US-ABBOTT-12P-163-0961731-00

PATIENT
  Age: 68 Year
  Sex: 0
  Weight: 59.93 kg

DRUGS (6)
  1. NIASPAN (COATED) 500MG [Suspect]
     Indication: LIPOPROTEIN (A) INCREASED
     Dosage: 1 IN 1 DAY AT BEDTIME
     Dates: start: 20120710, end: 20120728
  2. NIASPAN (COATED) 500MG [Suspect]
     Dosage: 1 IN 1 DAY AT BEDTIME
     Dates: start: 20120729
  3. ASA [Concomitant]
     Indication: PRODUCT USED FOR UNKNOWN INDICATION
  4. FISH OIL [Concomitant]
     Indication: PRODUCT USED FOR UNKNOWN INDICATION
  5. VITAMIN E [Concomitant]
     Indication: PRODUCT USED FOR UNKNOWN INDICATION
  6. FLAXSEED [Concomitant]
     Indication: PRODUCT USED FOR UNKNOWN INDICATION

REACTIONS (8)
  - Heart rate irregular [Recovered/Resolved]
  - Pruritus [Recovered/Resolved]
  - Erythema [Recovered/Resolved]
  - Dyspnoea [Recovered/Resolved]
  - Nausea [Recovered/Resolved]
  - Vomiting [Recovered/Resolved]
  - Dyspnoea [Not Recovered/Not Resolved]
  - Depression [Recovered/Resolved]
